FAERS Safety Report 5074498-2 (Version None)
Quarter: 2006Q3

REPORT INFORMATION
  Report Type: 
  Country: None (occurrence: None)
  Receive Date: 20060803
  Receipt Date: 20060726
  Transmission Date: 20061208
  Serious: Yes (Hospitalization, Other)
  Sender: FDA-Public Use
  Company Number: 2006-06-2188

PATIENT
  Age: 71 Year
  Sex: Female
  Weight: 81.6475 kg

DRUGS (4)
  1. TEMODAR [Suspect]
     Indication: ASTROCYTOMA
     Dosage: 300 MG QD X5D ORAL
     Route: 048
     Dates: start: 20060511, end: 20060616
  2. RADIATION THERAPY [Concomitant]
  3. TOPROL-XL [Concomitant]
  4. KYTRIL [Concomitant]

REACTIONS (2)
  - APLASTIC ANAEMIA [None]
  - EPISTAXIS [None]
